FAERS Safety Report 12765155 (Version 1)
Quarter: 2016Q3

REPORT INFORMATION
  Report Type: Spontaneous
  Country: US (occurrence: US)
  Receive Date: 20160921
  Receipt Date: 20160921
  Transmission Date: 20161109
  Serious: Yes (Other)
  Sender: FDA-Public Use
  Company Number: US-ACCORD-043970

PATIENT
  Sex: Male
  Weight: 169 kg

DRUGS (2)
  1. LISINOPRIL ACCORD [Suspect]
     Active Substance: LISINOPRIL
     Indication: PRODUCT USED FOR UNKNOWN INDICATION
     Dosage: PRESCRIBED?10?MG?BUT TOOK?ONLY?HALF?A?PILL
     Dates: start: 20160125, end: 201606
  2. ATORVASTATIN [Suspect]
     Active Substance: ATORVASTATIN
     Indication: PRODUCT USED FOR UNKNOWN INDICATION
     Dates: start: 20160125, end: 201606

REACTIONS (1)
  - Blood urine present [Recovered/Resolved]
